FAERS Safety Report 17618009 (Version 2)
Quarter: 2021Q1

REPORT INFORMATION
  Report Type: Spontaneous
  Country: US (occurrence: US)
  Receive Date: 20200402
  Receipt Date: 20210330
  Transmission Date: 20210419
  Serious: No
  Sender: FDA-Public Use
  Company Number: US-ROCHE-2365911

PATIENT
  Sex: Male
  Weight: 108.96 kg

DRUGS (2)
  1. ERIVEDGE [Suspect]
     Active Substance: VISMODEGIB
     Indication: BASAL CELL CARCINOMA
     Route: 048
     Dates: start: 20190531, end: 2020
  2. QUINAPRIL. [Concomitant]
     Active Substance: QUINAPRIL
     Indication: HYPERTENSION
     Dosage: ONGOING YES

REACTIONS (5)
  - Rheumatoid arthritis [Unknown]
  - Fatigue [Recovering/Resolving]
  - Muscle spasms [Unknown]
  - Epigastric discomfort [Recovering/Resolving]
  - Impaired work ability [Unknown]
